FAERS Safety Report 15314945 (Version 1)
Quarter: 2018Q3

REPORT INFORMATION
  Report Type: Spontaneous
  Country: US (occurrence: US)
  Receive Date: 20180815
  Receipt Date: 20180815
  Transmission Date: 20181010
  Serious: Yes (Disabling)
  Sender: FDA-Public Use
  Company Number: None

PATIENT
  Age: 61 Year
  Sex: Male
  Weight: 60.75 kg

DRUGS (5)
  1. CLONAZEPAM. [Concomitant]
     Active Substance: CLONAZEPAM
  2. MULTIVITAMENS [Concomitant]
  3. GILENYA [Suspect]
     Active Substance: FINGOLIMOD HYDROCHLORIDE
     Indication: MULTIPLE SCLEROSIS
     Dosage: ?          QUANTITY:1 CAPSULE(S);?
     Route: 048
  4. VITAMEN D [Concomitant]
  5. FLOMAX [Concomitant]
     Active Substance: TAMSULOSIN HYDROCHLORIDE

REACTIONS (5)
  - Pain in extremity [None]
  - Diarrhoea [None]
  - Arthralgia [None]
  - Back pain [None]
  - Abdominal distension [None]

NARRATIVE: CASE EVENT DATE: 20180131
